FAERS Safety Report 22531230 (Version 1)
Quarter: 2023Q2

REPORT INFORMATION
  Report Type: Report from Study
  Country: IN (occurrence: IN)
  Receive Date: 20230607
  Receipt Date: 20230607
  Transmission Date: 20230722
  Serious: Yes (Other)
  Sender: FDA-Public Use
  Company Number: IN-SUN PHARMACEUTICAL INDUSTRIES LTD-2023R1-393200

PATIENT
  Age: 49 Year
  Sex: Male

DRUGS (1)
  1. METHOTREXATE [Suspect]
     Active Substance: METHOTREXATE
     Indication: Psoriasis
     Dosage: UNK (56 MG)
     Route: 065

REACTIONS (6)
  - Anaemia [Recovered/Resolved]
  - Leukopenia [Recovered/Resolved]
  - Toxicity to various agents [Unknown]
  - Liver function test abnormal [Recovered/Resolved]
  - Mucosal erosion [Unknown]
  - Skin erosion [Unknown]
